FAERS Safety Report 9093175 (Version 1)
Quarter: 2013Q1

REPORT INFORMATION
  Report Type: Spontaneous
  Country: US (occurrence: None)
  Receive Date: 20130122
  Receipt Date: 20130122
  Transmission Date: 20140127
  Serious: Yes (Death)
  Sender: FDA-Public Use
  Company Number: 1553115

PATIENT
  Age: 20 Year
  Sex: Female

DRUGS (4)
  1. LORAZEPAM [Suspect]
  2. UNSPECIFIED DRUG [Suspect]
  3. MARIJUANA [Suspect]
  4. UNSPECIFIED MEDICATION [Suspect]

REACTIONS (18)
  - Toxicity to various agents [None]
  - Agitation [None]
  - White blood cell count decreased [None]
  - Blood potassium decreased [None]
  - Aspartate aminotransferase increased [None]
  - Myoglobin blood increased [None]
  - Blood creatine phosphokinase increased [None]
  - Areflexia [None]
  - Apnoea [None]
  - Acidosis [None]
  - Alanine aminotransferase increased [None]
  - Blood glucose increased [None]
  - Haemoglobin decreased [None]
  - Prothrombin time prolonged [None]
  - Activated partial thromboplastin time prolonged [None]
  - Brain oedema [None]
  - Bronchopneumonia [None]
  - Myocardial infarction [None]
